FAERS Safety Report 17895177 (Version 1)
Quarter: 2020Q2

REPORT INFORMATION
  Report Type: Spontaneous
  Country: US (occurrence: US)
  Receive Date: 20200613
  Receipt Date: 20200613
  Transmission Date: 20200714
  Serious: No
  Sender: FDA-Public Use
  Company Number: None

PATIENT
  Age: 58 Year
  Sex: Female
  Weight: 56.25 kg

DRUGS (3)
  1. Z OPTIMA [Concomitant]
  2. BIOTIN [Concomitant]
     Active Substance: BIOTIN
  3. U DREAM [Suspect]
     Active Substance: HERBALS
     Indication: INSOMNIA
     Dates: start: 20200611, end: 20200613

REACTIONS (7)
  - Dysarthria [None]
  - Gait disturbance [None]
  - Memory impairment [None]
  - Head discomfort [None]
  - Rash erythematous [None]
  - Abnormal behaviour [None]
  - Balance disorder [None]

NARRATIVE: CASE EVENT DATE: 20200613
